FAERS Safety Report 8382860-5 (Version None)
Quarter: 2012Q2

REPORT INFORMATION
  Report Type: 
  Country: None (occurrence: None)
  Receive Date: 20120524
  Receipt Date: 20120512
  Transmission Date: 20120825
  Serious: Yes (Hospitalization)
  Sender: FDA-Public Use
  Company Number: CA-JNJFOC-20120511526

PATIENT
  Sex: Female
  Weight: 77.7 kg

DRUGS (2)
  1. PREDNISONE TAB [Concomitant]
     Route: 065
  2. REMICADE [Suspect]
     Indication: CROHN'S DISEASE
     Route: 042
     Dates: start: 20120510, end: 20120510

REACTIONS (2)
  - MOBILITY DECREASED [None]
  - ARTHRALGIA [None]
